FAERS Safety Report 9712842 (Version 1)
Quarter: 2013Q4

REPORT INFORMATION
  Report Type: Spontaneous
  Country: US (occurrence: US)
  Receive Date: 20131126
  Receipt Date: 20131126
  Transmission Date: 20140711
  Serious: No
  Sender: FDA-Public Use
  Company Number: US-BRISTOL-MYERS SQUIBB COMPANY-18930628

PATIENT
  Age: 66 Year
  Sex: Female
  Weight: 99.77 kg

DRUGS (15)
  1. BYDUREON [Suspect]
     Indication: TYPE 2 DIABETES MELLITUS
     Dates: start: 201212
  2. METFORMIN [Concomitant]
  3. CELEBREX [Concomitant]
  4. HCTZ [Concomitant]
  5. LOVAZA [Concomitant]
  6. FAMOTIDINE [Concomitant]
  7. PRAVASTATIN SODIUM [Concomitant]
  8. ASPIRIN [Concomitant]
  9. ZETIA [Concomitant]
  10. COREG [Concomitant]
  11. TRILIPIX [Concomitant]
  12. VASOTEC [Concomitant]
  13. BUPROPION SR [Concomitant]
  14. SINGULAIR [Concomitant]
  15. LANTUS [Concomitant]
     Dosage: 40UNITS QHS

REACTIONS (5)
  - Injection site extravasation [Unknown]
  - Injection site haemorrhage [Unknown]
  - Injection site pain [Unknown]
  - Weight decreased [Unknown]
  - Blood glucose decreased [Unknown]
